FAERS Safety Report 10158340 (Version 5)
Quarter: 2017Q2

REPORT INFORMATION
  Report Type: Spontaneous
  Country: ES (occurrence: ES)
  Receive Date: 20140507
  Receipt Date: 20170421
  Transmission Date: 20170829
  Serious: Yes (Other)
  Sender: FDA-Public Use
  Company Number: ES-009507513-1404ESP014809

PATIENT
  Age: 55 Year
  Sex: Female
  Weight: 67 kg

DRUGS (5)
  1. MASTICAL [Concomitant]
     Indication: SPINAL COMPRESSION FRACTURE
     Dosage: 500 MG, DAILY
     Route: 048
     Dates: start: 20140124
  2. IBUPROFEN. [Concomitant]
     Active Substance: IBUPROFEN
     Indication: BACK PAIN
     Dosage: 600 MG/12H
     Route: 048
     Dates: start: 20140303
  3. FOSAVANCE [Suspect]
     Active Substance: ALENDRONATE SODIUM\CHOLECALCIFEROL
     Indication: SPINAL COMPRESSION FRACTURE
     Dosage: 70 MG/2800 IU, WEEKLY
     Route: 048
     Dates: start: 201009, end: 20140324
  4. FOSAVANCE [Suspect]
     Active Substance: ALENDRONATE SODIUM\CHOLECALCIFEROL
     Indication: OSTEOPOROSIS
  5. METAMIZOL HEXAL [Concomitant]
     Indication: BACK PAIN
     Dosage: 1/8HOURS
     Route: 048
     Dates: start: 20140303

REACTIONS (1)
  - Sternal fracture [Recovering/Resolving]

NARRATIVE: CASE EVENT DATE: 20140327
